FAERS Safety Report 23728278 (Version 1)
Quarter: 2024Q2

REPORT INFORMATION
  Report Type: Spontaneous
  Country: US (occurrence: None)
  Receive Date: 20240410
  Receipt Date: 20240410
  Transmission Date: 20240716
  Serious: No
  Sender: FDA-Public Use
  Company Number: None

PATIENT

DRUGS (2)
  1. RIFAMPIN [Suspect]
     Active Substance: RIFAMPIN
     Route: 048
  2. RIFAPENTINE [Suspect]
     Active Substance: RIFAPENTINE
     Route: 048

REACTIONS (5)
  - Product dispensing error [None]
  - Product name confusion [None]
  - Wrong product administered [None]
  - Transcription medication error [None]
  - Product dispensing error [None]
